FAERS Safety Report 8821256 (Version 2)
Quarter: 2012Q4

REPORT INFORMATION
  Report Type: 
  Country: BJ (occurrence: BJ)
  Receive Date: 20121002
  Receipt Date: 20121105
  Transmission Date: 20130627
  Serious: Yes (Other)
  Sender: FDA-Public Use
  Company Number: BJ-ROCHE-1029570

PATIENT
  Sex: Female

DRUGS (3)
  1. SULFAMETHOXAZOLE/TRIMETHOPRIM [Suspect]
     Indication: MALARIA PROPHYLAXIS
     Route: 065
  2. MEFLOQUINE HYDROCHLORIDE [Suspect]
     Indication: MALARIA PROPHYLAXIS
     Route: 065
  3. ANTIRETROVIRAL NOS [Concomitant]
     Indication: PROPHYLAXIS AGAINST HIV INFECTION
     Route: 065

REACTIONS (10)
  - Exposure during pregnancy [Unknown]
  - Vomiting [Unknown]
  - Nausea [Unknown]
  - Dizziness [Unknown]
  - Fatigue [Unknown]
  - Insomnia [Unknown]
  - Somnolence [Unknown]
  - Nightmare [Unknown]
  - Pain [Unknown]
  - Diarrhoea [Unknown]
